FAERS Safety Report 7860246-7 (Version None)
Quarter: 2011Q4

REPORT INFORMATION
  Report Type: 
  Country: None (occurrence: None)
  Receive Date: 20111027
  Receipt Date: 20111014
  Transmission Date: 20120403
  Serious: Yes (Hospitalization)
  Sender: FDA-Public Use
  Company Number: FR-ROCHE-1004942

PATIENT
  Sex: Female

DRUGS (3)
  1. MABTHERA [Suspect]
     Route: 042
     Dates: start: 20100705
  2. MABTHERA [Suspect]
     Indication: B-CELL LYMPHOMA
     Route: 042
     Dates: start: 20070705, end: 20070726
  3. MABTHERA [Suspect]
     Route: 042
     Dates: start: 20100324, end: 20100414

REACTIONS (3)
  - SKIN DEPIGMENTATION [None]
  - SPINAL COMPRESSION FRACTURE [None]
  - ALOPECIA [None]
